FAERS Safety Report 5866008-4 (Version None)
Quarter: 2008Q3

REPORT INFORMATION
  Report Type: 
  Country: None (occurrence: None)
  Receive Date: 20080829
  Receipt Date: 20080818
  Transmission Date: 20090109
  Serious: Yes (Hospitalization, Other)
  Sender: FDA-Public Use
  Company Number: AU-PFIZER INC-2008060261

PATIENT
  Sex: Male
  Weight: 65 kg

DRUGS (10)
  1. LIPITOR [Suspect]
     Indication: VASCULAR GRAFT
     Route: 048
     Dates: start: 19950101, end: 20060928
  2. PLENDIL [Suspect]
     Indication: HYPERTENSION
     Route: 048
     Dates: start: 19950101, end: 20080101
  3. CAPOTEN [Suspect]
     Indication: HYPERTENSION
     Route: 048
  4. ANTIHYPERTENSIVES [Concomitant]
  5. ZANTAC [Concomitant]
     Route: 048
  6. CARTIA XT [Concomitant]
     Route: 048
  7. ACETAMINOPHEN [Concomitant]
     Route: 048
  8. MULTI-VITAMINS [Concomitant]
     Route: 048
  9. PERNA CALICULATA EXTRACT [Concomitant]
     Route: 048
  10. GENERAL NUTRIENTS/MINERALS NOS [Concomitant]
     Route: 048

REACTIONS (22)
  - ARTHRALGIA [None]
  - ARTHROPATHY [None]
  - ATAXIA [None]
  - BALANCE DISORDER [None]
  - BLOOD CREATINE PHOSPHOKINASE INCREASED [None]
  - BLOOD PRESSURE INCREASED [None]
  - BONE PAIN [None]
  - CATARACT OPERATION [None]
  - FALL [None]
  - INTERVERTEBRAL DISC COMPRESSION [None]
  - INTERVERTEBRAL DISC OPERATION [None]
  - INTRACRANIAL HYPOTENSION [None]
  - MUSCULAR WEAKNESS [None]
  - MUSCULOSKELETAL PAIN [None]
  - MUSCULOSKELETAL STIFFNESS [None]
  - MYOSITIS [None]
  - NERVE INJURY [None]
  - OSTEOPENIA [None]
  - PAIN IN EXTREMITY [None]
  - PARAESTHESIA [None]
  - PERONEAL NERVE PALSY [None]
  - SENSATION OF HEAVINESS [None]
